FAERS Safety Report 4882246-1 (Version None)
Quarter: 2006Q1

REPORT INFORMATION
  Report Type: 
  Country: None (occurrence: None)
  Receive Date: 20060117
  Receipt Date: 20060110
  Transmission Date: 20060701
  Serious: Yes (Other)
  Sender: FDA-Public Use
  Company Number: US-AVENTIS-200610342US

PATIENT
  Age: 38 Year
  Sex: Male

DRUGS (1)
  1. NASACORT AQ [Suspect]
     Indication: SWELLING
     Dosage: DOSE: 2 SPRAYS
     Route: 055
     Dates: start: 20050601

REACTIONS (1)
  - HEPATOMEGALY [None]
